FAERS Safety Report 9352516 (Version 2)
Quarter: 2013Q3

REPORT INFORMATION
  Report Type: Spontaneous
  Country: US (occurrence: US)
  Receive Date: 20130617
  Receipt Date: 20130722
  Transmission Date: 20140515
  Serious: No
  Sender: FDA-Public Use
  Company Number: US-009507513-1306USA006480

PATIENT
  Age: 74 Year
  Sex: Female
  Weight: 58.96 kg

DRUGS (5)
  1. CORICIDIN HBP COLD AND FLU [Suspect]
     Indication: NASOPHARYNGITIS
     Dosage: 1 DF, ONCE
     Route: 048
     Dates: start: 201304
  2. CORICIDIN HBP COLD AND FLU [Suspect]
     Indication: MEDICAL OBSERVATION
  3. PRAVASTATIN SODIUM [Concomitant]
     Indication: BLOOD CHOLESTEROL INCREASED
     Dosage: UNK, UNKNOWN
  4. LISINOPRIL [Concomitant]
     Indication: HYPERTENSION
     Dosage: 1 DF, QAM
  5. METOPROLOL [Concomitant]
     Indication: HYPERTENSION
     Dosage: 25 MG, QD

REACTIONS (2)
  - Blood pressure increased [Recovered/Resolved]
  - Hypersomnia [Unknown]
